FAERS Safety Report 14322655 (Version 3)
Quarter: 2018Q1

REPORT INFORMATION
  Report Type: Spontaneous
  Country: JP (occurrence: JP)
  Receive Date: 20171225
  Receipt Date: 20180202
  Transmission Date: 20180509
  Serious: Yes (Other)
  Sender: FDA-Public Use
  Company Number: JP-SA-2017SA254063

PATIENT
  Age: 93 Year
  Sex: Female
  Weight: 35.2 kg

DRUGS (10)
  1. NIKORANMART [Concomitant]
     Active Substance: NICORANDIL
     Route: 065
     Dates: end: 20170509
  2. FUROSEMIDE. [Concomitant]
     Active Substance: FUROSEMIDE
     Route: 065
     Dates: end: 20170509
  3. FRANDOL TAPE [Concomitant]
     Active Substance: ISOSORBIDE DINITRATE
     Route: 065
     Dates: end: 20170509
  4. LANTUS SOLOSTAR [Suspect]
     Active Substance: INSULIN GLARGINE
     Indication: TYPE 2 DIABETES MELLITUS
     Dosage: DOSE:6 UNIT(S)
     Route: 058
     Dates: end: 20170327
  5. CARVEDILOL. [Concomitant]
     Active Substance: CARVEDILOL
     Route: 065
     Dates: end: 20170509
  6. CORTRIL [Concomitant]
     Active Substance: HYDROCORTISONE
     Route: 065
     Dates: end: 20170509
  7. SOLOSTAR [Suspect]
     Active Substance: DEVICE
     Indication: TYPE 2 DIABETES MELLITUS
     Dates: end: 20170327
  8. AMLODIPINE [Concomitant]
     Active Substance: AMLODIPINE BESYLATE
     Route: 065
     Dates: end: 20170509
  9. NOVORAPID [Concomitant]
     Active Substance: INSULIN ASPART
     Indication: TYPE 2 DIABETES MELLITUS
     Dosage: DOSE: 14 UNITS/DAY?(5-5-4)
     Route: 058
     Dates: end: 20170509
  10. CANDESARTAN. [Concomitant]
     Active Substance: CANDESARTAN
     Route: 065
     Dates: end: 20170509

REACTIONS (1)
  - Hypoglycaemia [Unknown]
